FAERS Safety Report 8991003 (Version 3)
Quarter: 2013Q3

REPORT INFORMATION
  Report Type: Spontaneous
  Country: US (occurrence: US)
  Receive Date: 20121231
  Receipt Date: 20130712
  Transmission Date: 20140515
  Serious: Yes (Other)
  Sender: FDA-Public Use
  Company Number: US-UCBSA-073888

PATIENT
  Age: 59 Year
  Sex: Female
  Weight: 88.63 kg

DRUGS (10)
  1. CIMZIA [Suspect]
     Indication: RHEUMATOID ARTHRITIS
     Dosage: NO OF DOSES RECEIVED: 26
     Route: 058
     Dates: start: 201007, end: 20121115
  2. METHOTREXATE [Concomitant]
     Indication: RHEUMATOID ARTHRITIS
     Dosage: 17.5 MG WEEKLY
  3. FOLIC ACID [Concomitant]
     Indication: RHEUMATOID ARTHRITIS
  4. PLAVIX [Concomitant]
     Dosage: UNKNOWN DOSE
  5. ASA [Concomitant]
     Dosage: UNKNOWN DOSE
  6. AMBIEN [Concomitant]
     Dosage: UNKNOWN DOSE
  7. ADVAIR [Concomitant]
     Dosage: UNKNOWN DOSE
  8. XYZAL [Concomitant]
     Dosage: UNKNOWN DOSE
  9. ELMIRON [Concomitant]
     Dosage: UNKNOWN DOSE
  10. IBUPROFEN [Concomitant]
     Dosage: UNKNOWN DOSE

REACTIONS (1)
  - Non-Hodgkin^s lymphoma [Recovering/Resolving]
